FAERS Safety Report 8881752 (Version 3)
Quarter: 2013Q3

REPORT INFORMATION
  Report Type: Report from Study
  Country: IL (occurrence: IL)
  Receive Date: 20121102
  Receipt Date: 20130715
  Transmission Date: 20140515
  Serious: Yes (Hospitalization)
  Sender: FDA-Public Use
  Company Number: IL-BRISTOL-MYERS SQUIBB COMPANY-17075813

PATIENT
  Age: 82 Year
  Sex: Male

DRUGS (7)
  1. GLUCOPHAGE [Suspect]
     Indication: TYPE 2 DIABETES MELLITUS
     Dates: start: 20111002
  2. NOVONORM [Suspect]
     Indication: TYPE 2 DIABETES MELLITUS
     Dosage: BEFORE RANDZ-15JAN12=5MG,8MAR12-CONT=6MG
  3. PLACEBO [Suspect]
     Indication: TYPE 2 DIABETES MELLITUS
     Dosage: LAST DOSE 06FEB11
     Dates: start: 20110203
  4. ALDACTONE [Suspect]
  5. ENALAPRIL [Suspect]
  6. FUSID [Suspect]
  7. ASPIRIN [Concomitant]

REACTIONS (2)
  - Musculoskeletal chest pain [Recovered/Resolved]
  - Renal failure acute [Recovered/Resolved]
